FAERS Safety Report 5491290-5 (Version None)
Quarter: 2007Q4

REPORT INFORMATION
  Report Type: 
  Country: None (occurrence: None)
  Receive Date: 20071017
  Receipt Date: 20071005
  Transmission Date: 20080405
  Serious: Yes (Death)
  Sender: FDA-Public Use
  Company Number: 071008-0001073

PATIENT
  Age: 2 Day

DRUGS (1)
  1. INDOCIN [Suspect]
     Indication: PATENT DUCTUS ARTERIOSUS
     Dosage: 0.1 MG/KG; QD; IV
     Route: 042

REACTIONS (2)
  - DEATH NEONATAL [None]
  - HYPERKALAEMIA [None]
